FAERS Safety Report 6199814-X (Version None)
Quarter: 2009Q2

REPORT INFORMATION
  Report Type: 
  Country: None (occurrence: None)
  Receive Date: 20090522
  Receipt Date: 20090515
  Transmission Date: 20091009
  Serious: Yes (Other)
  Sender: FDA-Public Use
  Company Number: IT-ABBOTT-09P-083-0498465-00

PATIENT
  Age: 40 Year
  Sex: Female
  Weight: 50 kg

DRUGS (3)
  1. LEUPROLIDE ACETATE [Suspect]
     Indication: BREAST CANCER
  2. LEUPROLIDE ACETATE [Suspect]
  3. TAMOXIFEN CITRATE [Suspect]
     Indication: BREAST CANCER

REACTIONS (8)
  - ASTHENIA [None]
  - HEADACHE [None]
  - HOT FLUSH [None]
  - MUSCLE CONTRACTIONS INVOLUNTARY [None]
  - MYALGIA [None]
  - NAUSEA [None]
  - PAIN IN EXTREMITY [None]
  - PARAESTHESIA [None]
